FAERS Safety Report 6307335-6 (Version None)
Quarter: 2009Q3

REPORT INFORMATION
  Report Type: 
  Country: None (occurrence: None)
  Receive Date: 20090813
  Receipt Date: 20090803
  Transmission Date: 20100115
  Serious: Yes (Hospitalization)
  Sender: FDA-Public Use
  Company Number: CA-JNJFOC-20090800739

PATIENT
  Sex: Female
  Weight: 65 kg

DRUGS (2)
  1. REMICADE [Suspect]
     Route: 042
  2. REMICADE [Suspect]
     Indication: CROHN'S DISEASE
     Dosage: RECEIVED 4 INFUSIONS
     Route: 042

REACTIONS (4)
  - ARTHRITIS [None]
  - BACTERIA BLOOD IDENTIFIED [None]
  - HEADACHE [None]
  - TORTICOLLIS [None]
